FAERS Safety Report 20467779 (Version 5)
Quarter: 2022Q2

REPORT INFORMATION
  Report Type: Spontaneous
  Country: JP (occurrence: JP)
  Receive Date: 20220214
  Receipt Date: 20220613
  Transmission Date: 20220720
  Serious: Yes (Death, Hospitalization, Other)
  Sender: FDA-Public Use
  Company Number: JP-ASTELLAS-2021JP024942

PATIENT
  Age: 65 Year
  Sex: Male
  Weight: 38 kg

DRUGS (8)
  1. PADCEV [Suspect]
     Active Substance: ENFORTUMAB VEDOTIN-EJFV
     Indication: Transitional cell carcinoma
     Dosage: 1.0 MG/KG, UNKNOWN FREQ.
     Route: 041
     Dates: start: 20211214, end: 20220125
  2. PADCEV [Suspect]
     Active Substance: ENFORTUMAB VEDOTIN-EJFV
     Indication: Malignant neoplasm of renal pelvis
  3. KEYTRUDA [Suspect]
     Active Substance: PEMBROLIZUMAB
     Indication: Malignant neoplasm of renal pelvis
     Route: 042
     Dates: start: 20211111, end: 20211111
  4. GEMCITABINE [Concomitant]
     Active Substance: GEMCITABINE
     Indication: Malignant neoplasm of renal pelvis
     Route: 042
     Dates: start: 20210914, end: 20211020
  5. CISPLATIN [Concomitant]
     Active Substance: CISPLATIN
     Indication: Malignant neoplasm of renal pelvis
     Route: 042
     Dates: start: 20210915, end: 20211014
  6. CANRENOATE POTASSIUM [Concomitant]
     Active Substance: CANRENOATE POTASSIUM
     Indication: Diuretic therapy
     Dosage: 200 MG, ONCE TO TWICE DAILY
     Route: 042
     Dates: start: 20211130, end: 20220119
  7. CANRENOATE POTASSIUM [Concomitant]
     Active Substance: CANRENOATE POTASSIUM
     Indication: Ascites
  8. PIPERACILLIN SODIUM\TAZOBACTAM SODIUM [Concomitant]
     Active Substance: PIPERACILLIN SODIUM\TAZOBACTAM SODIUM
     Indication: Pyrexia
     Route: 065
     Dates: start: 20211219

REACTIONS (8)
  - Pyrexia [Recovering/Resolving]
  - Disease progression [Fatal]
  - Hyponatraemia [Recovering/Resolving]
  - Anaemia [Not Recovered/Not Resolved]
  - Interstitial lung disease [Recovering/Resolving]
  - Hypoaesthesia [Unknown]
  - Coating in mouth [Recovering/Resolving]
  - Metastases to peritoneum [Not Recovered/Not Resolved]

NARRATIVE: CASE EVENT DATE: 20211216
